FAERS Safety Report 4542276-6 (Version None)
Quarter: 2004Q4

REPORT INFORMATION
  Report Type: 
  Country: None (occurrence: None)
  Receive Date: 20041227
  Receipt Date: 20041221
  Transmission Date: 20050328
  Serious: Yes (Hospitalization, Other)
  Sender: FDA-Public Use
  Company Number: 2004-12-0369

PATIENT
  Age: 47 Year
  Sex: Female

DRUGS (2)
  1. TEMODAR [Suspect]
     Dosage: 75 MG/M^2 ORAL
     Route: 048
     Dates: start: 20041012, end: 20041109
  2. RADIATION THERAPY [Concomitant]

REACTIONS (4)
  - FEBRILE NEUTROPENIA [None]
  - PANCYTOPENIA [None]
  - PSEUDOMONAS INFECTION [None]
  - RASH [None]
